FAERS Safety Report 13577440 (Version 1)
Quarter: 2017Q2

REPORT INFORMATION
  Report Type: Report from Study
  Country: TN (occurrence: TN)
  Receive Date: 20170524
  Receipt Date: 20170524
  Transmission Date: 20170830
  Serious: Yes (Death, Hospitalization)
  Sender: FDA-Public Use
  Company Number: TN-SA-2017SA092557

PATIENT
  Age: 85 Year
  Sex: Male

DRUGS (10)
  1. ASPEGIC [Concomitant]
     Active Substance: ASPIRIN DL-LYSINE
     Route: 048
     Dates: end: 20170221
  2. LANTUS [Concomitant]
     Active Substance: INSULIN GLARGINE
     Route: 058
     Dates: end: 20170221
  3. PLAVIX [Suspect]
     Active Substance: CLOPIDOGREL BISULFATE
     Indication: STENT PLACEMENT
     Route: 048
     Dates: start: 20090501, end: 20170221
  4. CORDARONE [Concomitant]
     Active Substance: AMIODARONE HYDROCHLORIDE
     Route: 048
     Dates: end: 20170221
  5. VASCOR [Concomitant]
     Active Substance: BEPRIDIL HYDROCHLORIDE
     Route: 048
     Dates: end: 20170221
  6. PLAVIX [Suspect]
     Active Substance: CLOPIDOGREL BISULFATE
     Indication: MYOCARDIAL INFARCTION
     Route: 048
     Dates: start: 20090501, end: 20170221
  7. APROVEL [Concomitant]
     Active Substance: IRBESARTAN
     Route: 048
     Dates: end: 20170221
  8. GLUCOR [Concomitant]
     Active Substance: ACARBOSE
     Route: 048
     Dates: end: 20170221
  9. INSULIN [Concomitant]
     Active Substance: INSULIN NOS
     Route: 058
     Dates: end: 20170221
  10. DIAFUSOR [Concomitant]
     Active Substance: NITROGLYCERIN
     Route: 048
     Dates: end: 20170221

REACTIONS (1)
  - Acute pulmonary oedema [Fatal]

NARRATIVE: CASE EVENT DATE: 20170221
